FAERS Safety Report 18214836 (Version 1)
Quarter: 2020Q3

REPORT INFORMATION
  Report Type: Spontaneous
  Country: US (occurrence: US)
  Receive Date: 20200831
  Receipt Date: 20200831
  Transmission Date: 20201103
  Serious: No
  Sender: FDA-Public Use
  Company Number: US-GALDERMA-US2020006446

PATIENT
  Age: 22 Year
  Sex: Female

DRUGS (5)
  1. EPIDUO FORTE [Suspect]
     Active Substance: ADAPALENE\BENZOYL PEROXIDE
     Indication: ACNE
     Dosage: 0.3/2.5%
     Route: 061
     Dates: start: 20191012, end: 20200107
  2. CLINDAGEL [Concomitant]
     Active Substance: CLINDAMYCIN PHOSPHATE
     Indication: ACNE
     Route: 061
     Dates: start: 201911
  3. SEYSARA [Concomitant]
     Active Substance: SARECYCLINE HYDROCHLORIDE
     Indication: ACNE
     Route: 048
     Dates: start: 201910, end: 201912
  4. EPIDUO FORTE [Suspect]
     Active Substance: ADAPALENE\BENZOYL PEROXIDE
     Dosage: 0.3/2.5%
     Route: 061
     Dates: start: 20200108, end: 20200130
  5. BENZOYL PEROXIDE WASH [Concomitant]
     Active Substance: BENZOYL PEROXIDE
     Indication: ACNE
     Route: 065
     Dates: start: 201911

REACTIONS (4)
  - Skin exfoliation [Not Recovered/Not Resolved]
  - Erythema [Not Recovered/Not Resolved]
  - Rash pruritic [Not Recovered/Not Resolved]
  - Perioral dermatitis [Not Recovered/Not Resolved]

NARRATIVE: CASE EVENT DATE: 20200108
